FAERS Safety Report 9437547 (Version 2)
Quarter: 2014Q2

REPORT INFORMATION
  Report Type: Spontaneous
  Country: US (occurrence: None)
  Receive Date: 20130731
  Receipt Date: 20140521
  Transmission Date: 20141212
  Serious: Yes (Hospitalization)
  Sender: FDA-Public Use
  Company Number: 2013-317

PATIENT
  Age: 52 Year
  Sex: Female

DRUGS (6)
  1. CLOZAPINE [Suspect]
     Indication: SCHIZOPHRENIA
     Dosage: 225-450 MG, QD, ORAL
     Route: 048
  2. OXYBUTYNIN CHLORIDE [Concomitant]
  3. ESCITALOPRAM [Concomitant]
  4. ASPIRIN [Concomitant]
  5. ALBUTEROL SULFATE AND IPRATROPIUM BROMIDE [Concomitant]
  6. ADVAIR [Concomitant]

REACTIONS (8)
  - Chronic obstructive pulmonary disease [None]
  - Toxicity to various agents [None]
  - Myoclonus [None]
  - Hypotension [None]
  - Salivary hypersecretion [None]
  - Somnolence [None]
  - Unresponsive to stimuli [None]
  - Depressed level of consciousness [None]
